FAERS Safety Report 16126509 (Version 3)
Quarter: 2022Q1

REPORT INFORMATION
  Report Type: Report from Study
  Country: US (occurrence: None)
  Receive Date: 20190328
  Receipt Date: 20220208
  Transmission Date: 20220424
  Serious: Yes (Hospitalization)
  Sender: FDA-Public Use
  Company Number: US-ROCHE-2287758

PATIENT
  Age: 57 Year
  Sex: Female
  Weight: 99.8 kg

DRUGS (4)
  1. ATEZOLIZUMAB [Suspect]
     Active Substance: ATEZOLIZUMAB
     Indication: Cholangiocarcinoma
     Dosage: MOST RECENT DOSE ON 20/NOV/2018
     Route: 042
     Dates: start: 20180605
  2. COBIMETINIB [Suspect]
     Active Substance: COBIMETINIB
     Indication: Cholangiocarcinoma
     Dosage: MOST RECENT DOSE (TOTAL DOSE ADMINISTERED: 300 MG) ON 24/NOV/2018?ON 09/JUN/2020 AND 12/JUN/2020, TH
     Route: 048
     Dates: start: 20180605
  3. GEMCITABINE HYDROCHLORIDE [Concomitant]
     Active Substance: GEMCITABINE HYDROCHLORIDE
     Dates: start: 201610, end: 201704
  4. CISPLATIN [Concomitant]
     Active Substance: CISPLATIN

REACTIONS (3)
  - Urinary tract infection [Recovered/Resolved]
  - Pyrexia [Recovered/Resolved with Sequelae]
  - Ureteric obstruction [Recovered/Resolved with Sequelae]

NARRATIVE: CASE EVENT DATE: 20181125
